FAERS Safety Report 6869184-X (Version None)
Quarter: 2010Q3

REPORT INFORMATION
  Report Type: 
  Country: None (occurrence: None)
  Receive Date: 20100722
  Receipt Date: 20080723
  Transmission Date: 20110219
  Serious: No
  Sender: FDA-Public Use
  Company Number: US-PFIZER INC-2008054469

PATIENT
  Sex: Female
  Weight: 63.5 kg

DRUGS (7)
  1. CHANTIX [Suspect]
     Indication: SMOKING CESSATION THERAPY
     Route: 048
     Dates: start: 20080601, end: 20080601
  2. LEXAPRO [Concomitant]
  3. PREVACID [Concomitant]
  4. ZANAFLEX [Concomitant]
  5. OXYCODONE [Concomitant]
  6. VALIUM [Concomitant]
  7. MONTELUKAST SODIUM [Concomitant]

REACTIONS (2)
  - CONSTIPATION [None]
  - NERVOUSNESS [None]
